FAERS Safety Report 9897764 (Version 1)
Quarter: 2014Q1

REPORT INFORMATION
  Report Type: Spontaneous
  Country: US (occurrence: US)
  Receive Date: 20140214
  Receipt Date: 20140214
  Transmission Date: 20141002
  Serious: Yes (Hospitalization, Other)
  Sender: FDA-Public Use
  Company Number: US-ABBVIE-14P-163-1200694-00

PATIENT
  Age: 64 Year
  Sex: Male
  Weight: 81.72 kg

DRUGS (2)
  1. ANDROGEL [Suspect]
     Indication: BLOOD TESTOSTERONE DECREASED
  2. DEPAKOTE [Concomitant]
     Indication: CONVULSION

REACTIONS (4)
  - Pulmonary embolism [Unknown]
  - Thrombosis [Unknown]
  - Deep vein thrombosis [Unknown]
  - Dyspnoea [Unknown]
